FAERS Safety Report 8818540 (Version 1)
Quarter: 2012Q4

REPORT INFORMATION
  Report Type: Spontaneous
  Country: US (occurrence: None)
  Receive Date: 20121002
  Receipt Date: 20121002
  Transmission Date: 20130627
  Serious: Yes (Life-Threatening)
  Sender: FDA-Public Use
  Company Number: 091203-000137

PATIENT
  Age: 18 Year
  Sex: Female

DRUGS (6)
  1. PROACTIV RENEWING CLEANSER [Suspect]
     Indication: ACNE
     Dosage: Once daily dermal
     Dates: start: 200905
  2. BENZOYL PEROXIDE [Suspect]
     Indication: ACNE
     Dosage: Once daily dermal
     Dates: start: 200905
  3. PROACTIV CLARIFYING CLEANSER [Suspect]
     Indication: ACNE
     Dosage: Once daily dermal
     Dates: start: 200905
  4. PROACTIV CLARIFYING DAY LOTION [Suspect]
     Indication: ACNE
     Dosage: Once daily dermal
     Dates: start: 200905
  5. PROACTIV REFINING MASK [Suspect]
     Indication: ACNE
     Dosage: Once daily dermal
     Dates: start: 200905
  6. PROACTIV CLARIFYING NIGHT LOTION [Suspect]
     Indication: ACNE
     Dosage: Once daily dermal
     Dates: start: 200905

REACTIONS (7)
  - Erythema [None]
  - Swelling face [None]
  - Oedema mouth [None]
  - Lip swelling [None]
  - Swollen tongue [None]
  - Eye swelling [None]
  - Respiratory disorder [None]
